FAERS Safety Report 9068314 (Version 2)
Quarter: 2013Q1

REPORT INFORMATION
  Report Type: Spontaneous
  Country: US (occurrence: US)
  Receive Date: 20130128
  Receipt Date: 20130225
  Transmission Date: 20140127
  Serious: Yes (Disabling, Other)
  Sender: FDA-Public Use
  Company Number: US-ROCHE-1183348

PATIENT
  Age: 52 Year
  Sex: Male
  Weight: 74.46 kg

DRUGS (7)
  1. PEGASYS [Suspect]
     Indication: HEPATITIS C
     Route: 058
     Dates: start: 20121116, end: 20130104
  2. VICTRELIS [Suspect]
     Indication: HEPATITIS C
     Route: 048
     Dates: start: 20121220, end: 20130104
  3. RIBAVIRIN [Suspect]
     Indication: HEPATITIS C
     Route: 048
     Dates: start: 20121116, end: 20130104
  4. METFORMIN [Concomitant]
     Indication: DIABETES MELLITUS
     Route: 048
     Dates: start: 20090514
  5. PIROXICAM [Concomitant]
     Route: 048
     Dates: start: 20100806
  6. LISOPRIL PLUS [Concomitant]
     Indication: BLOOD PRESSURE
     Dosage: 20/12.5 MG
     Route: 048
     Dates: start: 20110722
  7. AMLODIPINE [Concomitant]
     Route: 048
     Dates: start: 20120619, end: 20130103

REACTIONS (8)
  - Vision blurred [Not Recovered/Not Resolved]
  - Diplopia [Not Recovered/Not Resolved]
  - Headache [Not Recovered/Not Resolved]
  - Dizziness [Recovered/Resolved]
  - IIIrd nerve paralysis [Unknown]
  - Dysgeusia [Recovered/Resolved]
  - Dry skin [Recovered/Resolved]
  - Pruritus [Recovered/Resolved]
